FAERS Safety Report 24906383 (Version 1)
Quarter: 2025Q1

REPORT INFORMATION
  Report Type: Spontaneous
  Country: US (occurrence: US)
  Receive Date: 20250130
  Receipt Date: 20250130
  Transmission Date: 20250408
  Serious: No
  Sender: ABBVIE
  Company Number: US-ABBVIE-6099069

PATIENT
  Sex: Female

DRUGS (1)
  1. LASTACAFT [Suspect]
     Active Substance: ALCAFTADINE
     Indication: Product used for unknown indication
     Route: 047

REACTIONS (7)
  - Skin discolouration [Unknown]
  - Lacrimation increased [Unknown]
  - Eye discharge [Unknown]
  - Illness [Unknown]
  - Mass [Unknown]
  - Swelling of eyelid [Unknown]
  - Expired product administered [Unknown]
